FAERS Safety Report 9097976 (Version 5)
Quarter: 2016Q3

REPORT INFORMATION
  Report Type: Spontaneous
  Country: US (occurrence: US)
  Receive Date: 20130212
  Receipt Date: 20160824
  Transmission Date: 20161109
  Serious: Yes (Hospitalization, Other)
  Sender: FDA-Public Use
  Company Number: US-PFIZER INC-2013049600

PATIENT
  Age: 50 Year
  Sex: Female
  Weight: 73.92 kg

DRUGS (7)
  1. FLEXERIL [Concomitant]
     Active Substance: CYCLOBENZAPRINE HYDROCHLORIDE
     Indication: PAIN
     Dosage: 15 MG, 3X/DAY
     Dates: start: 200606
  2. TYLENOL [Concomitant]
     Active Substance: ACETAMINOPHEN
     Indication: PAIN
     Dosage: 300 MG, 4X/DAY
     Dates: start: 200606
  3. VALIUM [Concomitant]
     Active Substance: DIAZEPAM
     Indication: PANIC DISORDER
  4. LYRICA [Suspect]
     Active Substance: PREGABALIN
     Indication: NEURALGIA
     Dosage: 100 MG, 3X/DAY
     Dates: start: 2010, end: 20140417
  5. VALIUM [Concomitant]
     Active Substance: DIAZEPAM
     Indication: ANXIETY
     Dosage: 5 MG, 2X/DAY
     Dates: start: 200606
  6. LYRICA [Suspect]
     Active Substance: PREGABALIN
     Indication: PAIN
     Dosage: 100 MG, 2X/DAY
     Route: 048
     Dates: end: 201604
  7. DOXEPIN [Concomitant]
     Active Substance: DOXEPIN
     Indication: DEPRESSION
     Dosage: 50 MG, 1X/DAY (50MG 1 BY MOUTH AT BEDTIME)
     Route: 048
     Dates: start: 200606

REACTIONS (12)
  - Drug ineffective [Unknown]
  - Hypertension [Unknown]
  - Crying [Unknown]
  - Irritability [Not Recovered/Not Resolved]
  - Condition aggravated [Not Recovered/Not Resolved]
  - Generalised tonic-clonic seizure [Unknown]
  - Productive cough [Unknown]
  - Weight increased [Recovered/Resolved]
  - Posterior reversible encephalopathy syndrome [Unknown]
  - Blindness [Not Recovered/Not Resolved]
  - Tooth disorder [Unknown]
  - Depressed mood [Not Recovered/Not Resolved]

NARRATIVE: CASE EVENT DATE: 201207
